FAERS Safety Report 15894059 (Version 9)
Quarter: 2022Q2

REPORT INFORMATION
  Report Type: Report from Study
  Country: JP (occurrence: JP)
  Receive Date: 20190131
  Receipt Date: 20220613
  Transmission Date: 20220721
  Serious: Yes (Hospitalization)
  Sender: FDA-Public Use
  Company Number: JP-ABBVIE-18K-087-2380083-00

PATIENT
  Age: 65 Year
  Sex: Female
  Weight: 32 kg

DRUGS (2)
  1. CARBIDOPA\LEVODOPA [Suspect]
     Active Substance: CARBIDOPA\LEVODOPA
     Indication: Parkinson^s disease
     Dosage: MORNING DOSE: 9 ML, CD: 3.2 ML/HOUR, 16 HRS, EVENING DOSE: 1 ML/UNIT
     Route: 050
     Dates: start: 20170310
  2. CARBIDOPA\LEVODOPA [Suspect]
     Active Substance: CARBIDOPA\LEVODOPA

REACTIONS (7)
  - Inguinal hernia [Unknown]
  - Gait inability [Unknown]
  - Feeling hot [Unknown]
  - Product prescribing error [Unknown]
  - Malaise [Unknown]
  - Pain [Unknown]
  - Dyskinesia [Unknown]

NARRATIVE: CASE EVENT DATE: 20180531
